FAERS Safety Report 8370105-1 (Version None)
Quarter: 2012Q2

REPORT INFORMATION
  Report Type: 
  Country: None (occurrence: None)
  Receive Date: 20120518
  Receipt Date: 20120510
  Transmission Date: 20120825
  Serious: Yes (Death)
  Sender: FDA-Public Use
  Company Number: TH-JNJFOC-20120512002

PATIENT

DRUGS (29)
  1. DOXORUBICIN HCL [Suspect]
     Dosage: DAYS 1, 8 (15)
     Route: 042
  2. VINCRISTINE [Suspect]
     Dosage: DAYS 1, 8, 15, 22
     Route: 065
  3. ETOPOSIDE [Suspect]
     Indication: ACUTE LYMPHOCYTIC LEUKAEMIA
     Dosage: DAYS 22, 29, 32
     Route: 065
  4. ETOPOSIDE [Suspect]
     Dosage: STANDARD RISK/HIGH RISK: 300 MG/M2 /DOSE EVERY 4 WEEKS
     Route: 065
  5. CYCLOPHOSPHAMIDE [Suspect]
     Indication: ACUTE LYMPHOCYTIC LEUKAEMIA
     Dosage: STANDARD RISK/HIGH RISK: 300 MG/M2 /DOSE EVERY 8 WEEKS
     Route: 065
  6. DEXAMETHASONE [Suspect]
     Indication: ACUTE LYMPHOCYTIC LEUKAEMIA
     Dosage: EVERY 4 WEEKS
     Route: 065
  7. PREDNISONE [Suspect]
     Dosage: DAYS 1-29
     Route: 065
  8. ELSPAR [Suspect]
     Indication: ACUTE LYMPHOCYTIC LEUKAEMIA
     Dosage: DAYS 2, 4, 6, 8, 10, 12
     Route: 030
  9. CYTARABINE [Suspect]
     Dosage: HIGH DOSEHIGH RISK: 3 G/M2 EVERY 12 HOURS, DAYS 43, 44
     Route: 065
  10. CYTARABINE [Suspect]
     Dosage: DAYS 22, 29, 32
     Route: 065
  11. METHOTREXATE [Suspect]
     Dosage: EVERY 8 WEEKS DURING FIRST YEAR (HD; L: 1.5 G/M 2, S: 2 G/M 2, H: 5 G/M 2)
     Route: 065
  12. CYTARABINE [Suspect]
     Dosage: DAYS 22, 29, 32
     Route: 065
  13. METHOTREXATE [Suspect]
     Dosage: L: EVERY 6 - 8 WEEKS DURING FIRST YEAR, S/H: EVERY 4 WEEKS DURING FIRST YEAR
     Route: 037
  14. COTRIM [Concomitant]
     Indication: ANTIFUNGAL PROPHYLAXIS
     Dosage: FOR 3 CONSECUTIVE D/WK FROM D 15 OF REMISSION INDUCTION TO 12 WKS AFTER COMPL. OF ALL CHEMOTHERAPY
     Route: 065
  15. LEUCOVORIN CALCIUM [Concomitant]
     Route: 042
  16. PREDNISONE [Suspect]
     Indication: ACUTE LYMPHOCYTIC LEUKAEMIA
     Dosage: DAYS 1-29
     Route: 065
  17. METHOTREXATE [Suspect]
     Dosage: DAYS 1, 8
     Route: 037
  18. VINCRISTINE [Suspect]
     Indication: ACUTE LYMPHOCYTIC LEUKAEMIA
     Dosage: DAYS 1, 8, 15, 22
     Route: 065
  19. METHOTREXATE [Suspect]
     Indication: ACUTE LYMPHOCYTIC LEUKAEMIA
     Dosage: DAYS 1, 22, EXTRA METHOTREXATE ON DAYS 8 AND 15 FOR PATIENTS WITH CNS-2/ CNS-3 STATUS
     Route: 037
  20. METHOTREXATE [Suspect]
     Dosage: 30 MG/M 2 /DAY, WEEKLY
     Route: 065
  21. DOXORUBICIN HCL [Suspect]
     Indication: ACUTE LYMPHOCYTIC LEUKAEMIA
     Dosage: DAYS 1, 8 (15)
     Route: 042
  22. VINCRISTINE [Suspect]
     Dosage: EVERY 4 WEEKS
     Route: 065
  23. ETOPOSIDE [Suspect]
     Dosage: DAYS 22, 29, 32
     Route: 065
  24. MERCAPTOPURINE [Suspect]
     Indication: ACUTE LYMPHOCYTIC LEUKAEMIA
     Dosage: DAYS 1- 14
     Route: 065
  25. MERCAPTOPURINE [Suspect]
     Dosage: DAILY
     Route: 065
  26. METHOTREXATE [Suspect]
     Dosage: DAYS 1, 22
     Route: 037
  27. ELSPAR [Suspect]
     Dosage: DAYS 2, 4, 6, 8, 10, 12
     Route: 030
  28. CYTARABINE [Suspect]
     Indication: ACUTE LYMPHOCYTIC LEUKAEMIA
     Dosage: STANDARD RISK/HIGH RISK: 300 MG/M 2 /DOSE EVERY 8 WEEKS
     Route: 065
  29. METHOTREXATE [Suspect]
     Dosage: DAYS 1, 8 (HD; L: 1.5 G/M 2, S: 2 G/M 2, H: 5 G/M 2)
     Route: 065

REACTIONS (3)
  - OFF LABEL USE [None]
  - FUNGAL INFECTION [None]
  - BACTERIAL INFECTION [None]
